FAERS Safety Report 11220433 (Version 4)
Quarter: 2016Q2

REPORT INFORMATION
  Report Type: Spontaneous
  Country: US (occurrence: US)
  Receive Date: 20150625
  Receipt Date: 20160405
  Transmission Date: 20160815
  Serious: Yes (Death, Congenital Anomaly, Other)
  Sender: FDA-Public Use
  Company Number: US-APOTEX-2015AP008292

PATIENT
  Sex: Female

DRUGS (1)
  1. PAXIL [Suspect]
     Active Substance: PAROXETINE HYDROCHLORIDE
     Indication: PRODUCT USED FOR UNKNOWN INDICATION
     Route: 064

REACTIONS (10)
  - Bradycardia [Fatal]
  - Ventricular hypoplasia [Fatal]
  - Cardiac failure [Fatal]
  - Hypoplastic left heart syndrome [Fatal]
  - Ventricular hypertrophy [Fatal]
  - Atrioventricular septal defect [Fatal]
  - Coarctation of the aorta [Fatal]
  - Cardio-respiratory arrest [Fatal]
  - Congenital aortic anomaly [Fatal]
  - Foetal exposure during pregnancy [Fatal]
